FAERS Safety Report 8943440 (Version 2)
Quarter: 2013Q2

REPORT INFORMATION
  Report Type: Spontaneous
  Country: BE (occurrence: BE)
  Receive Date: 20121204
  Receipt Date: 20130503
  Transmission Date: 20140414
  Serious: Yes (Hospitalization, Other)
  Sender: FDA-Public Use
  Company Number: PHHY2012BE110547

PATIENT
  Age: 85 Year
  Sex: 0
  Weight: 61.5 kg

DRUGS (7)
  1. MIRTAZAPINE [Suspect]
     Indication: DEPRESSION
     Dosage: 30 MG, UNK
  2. VENLAFAXINE [Interacting]
     Indication: DEPRESSION
     Dosage: 150 MG, UNK
  3. BISOPROLOL [Concomitant]
     Dosage: 2.5 MG, UNK
  4. SODIUM PICOSULFATE [Concomitant]
  5. LEVOTHYROXIN [Concomitant]
     Dosage: 125 UG, UNK
  6. PANTOPRAZOLE [Concomitant]
     Dosage: 20 MG, UNK
  7. CALCIUM +D3 [Concomitant]

REACTIONS (16)
  - Metabolic encephalopathy [Recovered/Resolved]
  - Urinary tract infection [Recovered/Resolved]
  - Serotonin syndrome [Recovered/Resolved]
  - Loss of consciousness [Recovered/Resolved]
  - Unresponsive to stimuli [Recovered/Resolved]
  - Tachycardia [Recovered/Resolved]
  - Hypertension [Recovered/Resolved]
  - Hypertonia [Recovered/Resolved]
  - Hyperreflexia [Recovered/Resolved]
  - Pyuria [Recovered/Resolved]
  - Hyperhidrosis [Recovered/Resolved]
  - Akathisia [Recovered/Resolved]
  - Amnesia [Recovered/Resolved]
  - Depressed level of consciousness [Recovered/Resolved]
  - Drug interaction [Unknown]
  - Confusional state [Recovered/Resolved]
